FAERS Safety Report 10163607 (Version 1)
Quarter: 2014Q2

REPORT INFORMATION
  Report Type: Report from Study
  Country: MX (occurrence: MX)
  Receive Date: 20140509
  Receipt Date: 20140509
  Transmission Date: 20141212
  Serious: Yes (Other)
  Sender: FDA-Public Use
  Company Number: PHHY2014MX054599

PATIENT
  Age: 29 Year
  Sex: Male

DRUGS (2)
  1. OMNITROPE [Suspect]
     Indication: GROWTH HORMONE DEFICIENCY
     Dosage: 2 U, UNK
     Route: 058
     Dates: start: 20140502
  2. KERATIN [Concomitant]
     Dosage: 25 MG, QD

REACTIONS (1)
  - Drug abuse [Unknown]
